FAERS Safety Report 24775491 (Version 3)
Quarter: 2025Q1

REPORT INFORMATION
  Report Type: Report from Study
  Country: TW (occurrence: TW)
  Receive Date: 20241226
  Receipt Date: 20250213
  Transmission Date: 20250409
  Serious: Yes (Hospitalization, Other)
  Sender: TAKEDA
  Company Number: TW-TAKEDA-2024TUS125267

PATIENT
  Age: 29 Year
  Sex: Male

DRUGS (1)
  1. VEDOLIZUMAB [Suspect]
     Active Substance: VEDOLIZUMAB
     Indication: Colitis ulcerative

REACTIONS (3)
  - Colitis ulcerative [Recovered/Resolved]
  - Intestinal perforation [Recovering/Resolving]
  - Underweight [Recovering/Resolving]

NARRATIVE: CASE EVENT DATE: 20241212
